FAERS Safety Report 7417264-2 (Version None)
Quarter: 2011Q2

REPORT INFORMATION
  Report Type: 
  Country: None (occurrence: None)
  Receive Date: 20110415
  Receipt Date: 20110404
  Transmission Date: 20111010
  Serious: Yes (Congenital Anomaly)
  Sender: FDA-Public Use
  Company Number: US-KINGPHARMUSA00001-K201100398

PATIENT
  Sex: Female
  Weight: 1.859 kg

DRUGS (4)
  1. TAPAZOLE [Suspect]
     Dosage: 40 MG, DAILY
     Route: 064
  2. AMPHETAMINE [Concomitant]
     Route: 064
  3. TAPAZOLE [Suspect]
     Dosage: 10 MG, PER DAY
     Route: 064
  4. PROPRANOLOL [Concomitant]
     Dosage: 20 MG, THREE TIMES DAILY
     Route: 064

REACTIONS (6)
  - MICROTIA [None]
  - CHOANAL ATRESIA [None]
  - DELAYED FONTANELLE CLOSURE [None]
  - CLINODACTYLY [None]
  - HYPOTONIA [None]
  - ABNORMAL PALMAR/PLANTAR CREASES [None]
